FAERS Safety Report 6941409-1 (Version None)
Quarter: 2010Q3

REPORT INFORMATION
  Report Type: 
  Country: None (occurrence: None)
  Receive Date: 20100825
  Receipt Date: 20100820
  Transmission Date: 20110219
  Serious: Yes (Death)
  Sender: FDA-Public Use
  Company Number: US-CELGENEUS-163-21880-10082128

PATIENT
  Sex: Female

DRUGS (2)
  1. REVLIMID [Suspect]
     Dosage: 5-15 MG
     Route: 048
     Dates: start: 20061101, end: 20080301
  2. REVLIMID [Suspect]
     Route: 048
     Dates: start: 20080401, end: 20100601

REACTIONS (1)
  - DEATH [None]
